FAERS Safety Report 8119106-9 (Version None)
Quarter: 2012Q1

REPORT INFORMATION
  Report Type: 
  Country: None (occurrence: None)
  Receive Date: 20120207
  Receipt Date: 20120127
  Transmission Date: 20120608
  Serious: Yes (Hospitalization, Other)
  Sender: FDA-Public Use
  Company Number: PHHY2012US009261

PATIENT
  Age: 52 Year
  Sex: Male

DRUGS (18)
  1. SPIRONOLACTONE [Concomitant]
  2. RISEDRONATE SODIUM [Concomitant]
  3. NAFCILLIN [Suspect]
     Indication: CELLULITIS
  4. NAFCILLIN [Suspect]
     Indication: STAPHYLOCOCCAL BACTERAEMIA
  5. FUROSEMIDE [Concomitant]
  6. ACETYLSALICYLIC ACID SRT [Concomitant]
  7. DAPTOMYCIN [Suspect]
     Indication: STAPHYLOCOCCAL BACTERAEMIA
  8. OXYCODONE HCL AND ACETAMINOPHEN [Concomitant]
  9. AMLODIPINE [Concomitant]
  10. VALSARTAN [Concomitant]
  11. DAPTOMYCIN [Suspect]
     Indication: CELLULITIS
  12. WARFARIN SODIUM [Concomitant]
  13. HYDRALAZINE HCL [Concomitant]
  14. METOPROLOL [Concomitant]
  15. METFORMIN HCL [Concomitant]
  16. INSULIN [Concomitant]
  17. POTASSIUM CHLORIDE [Concomitant]
  18. STOOL SOFTENER [Concomitant]

REACTIONS (37)
  - ADRENAL ADENOMA [None]
  - GASTROINTESTINAL SOUNDS ABNORMAL [None]
  - LYMPHADENOPATHY [None]
  - INTERVERTEBRAL DISCITIS [None]
  - BACK PAIN [None]
  - TRANSAMINASES INCREASED [None]
  - CUSHINGOID [None]
  - PARASPINAL ABSCESS [None]
  - GENERAL PHYSICAL HEALTH DETERIORATION [None]
  - FATIGUE [None]
  - ABDOMINAL DISTENSION [None]
  - ECCHYMOSIS [None]
  - AXILLARY VEIN THROMBOSIS [None]
  - GASTROINTESTINAL INFLAMMATION [None]
  - MENTAL STATUS CHANGES [None]
  - ABNORMAL BEHAVIOUR [None]
  - MUSCULAR WEAKNESS [None]
  - MYCOBACTERIUM AVIUM COMPLEX INFECTION [None]
  - DYSSTASIA [None]
  - WHITE BLOOD CELL COUNT INCREASED [None]
  - OEDEMA PERIPHERAL [None]
  - MALAISE [None]
  - SKIN STRIAE [None]
  - SKIN HYPERPIGMENTATION [None]
  - DEEP VEIN THROMBOSIS [None]
  - DIVERTICULAR PERFORATION [None]
  - SUBDIAPHRAGMATIC ABSCESS [None]
  - NELSON'S SYNDROME [None]
  - IRRITABILITY [None]
  - CONTUSION [None]
  - SUBCLAVIAN VEIN THROMBOSIS [None]
  - HYPERADRENOCORTICISM [None]
  - ADRENAL DISORDER [None]
  - PSOAS ABSCESS [None]
  - RENAL FAILURE [None]
  - PAIN IN EXTREMITY [None]
  - PULMONARY EMBOLISM [None]
